FAERS Safety Report 14503202 (Version 4)
Quarter: 2018Q2

REPORT INFORMATION
  Report Type: Spontaneous
  Country: US (occurrence: US)
  Receive Date: 20180208
  Receipt Date: 20180515
  Transmission Date: 20180711
  Serious: No
  Sender: FDA-Public Use
  Company Number: US-PFIZER INC-2018053376

PATIENT
  Age: 80 Year
  Sex: Female
  Weight: 78 kg

DRUGS (3)
  1. IBRANCE [Suspect]
     Active Substance: PALBOCICLIB
     Dosage: 100 MG, CYCLIC (DAY1- 21, Q28 DAYS)
     Route: 048
     Dates: start: 20180115
  2. IBRANCE [Suspect]
     Active Substance: PALBOCICLIB
     Indication: BREAST CANCER METASTATIC
     Dosage: 125 MG, CYCLIC (DAY1- 21, Q28 DAYS)
     Route: 048
     Dates: start: 20180115, end: 2018
  3. IBRANCE [Suspect]
     Active Substance: PALBOCICLIB
     Dosage: 100 MG, CYCLIC (DAY1- 21, Q28 DAYS))
     Route: 048
     Dates: start: 20180115, end: 2018

REACTIONS (4)
  - Nausea [Unknown]
  - Blood count abnormal [Unknown]
  - Fatigue [Unknown]
  - Malaise [Unknown]

NARRATIVE: CASE EVENT DATE: 2018
